FAERS Safety Report 8977598 (Version 1)
Quarter: 2012Q4

REPORT INFORMATION
  Report Type: 
  Country: US (occurrence: US)
  Receive Date: 20121220
  Receipt Date: 20121220
  Transmission Date: 20130627
  Serious: Yes (Death)
  Sender: FDA-Public Use
  Company Number: US-GLAXOSMITHKLINE-A1005721A

PATIENT
  Age: 78 Year
  Sex: Female

DRUGS (8)
  1. VOTRIENT [Suspect]
     Indication: RENAL CELL CARCINOMA
     Dosage: 600MG Per day
     Route: 048
     Dates: start: 20120617
  2. TYLENOL [Concomitant]
  3. AMITRIPTYLINE [Concomitant]
  4. DEXAMETHASONE [Concomitant]
  5. FENTANYL [Concomitant]
  6. NORCO [Concomitant]
  7. METOPROLOL [Concomitant]
  8. ONDANSETRON [Concomitant]

REACTIONS (1)
  - Death [Fatal]
